FAERS Safety Report 24175347 (Version 1)
Quarter: 2024Q3

REPORT INFORMATION
  Report Type: Spontaneous
  Country: US (occurrence: US)
  Receive Date: 20240805
  Receipt Date: 20240805
  Transmission Date: 20241017
  Serious: Yes (Hospitalization, Disabling, Other)
  Sender: ELI LILLY AND CO
  Company Number: US-ELI_LILLY_AND_COMPANY-US202407015567

PATIENT
  Age: 51 Year
  Sex: Female

DRUGS (1)
  1. MOUNJARO [Suspect]
     Active Substance: TIRZEPATIDE
     Indication: Type 2 diabetes mellitus
     Dosage: UNK UNK, UNKNOWN
     Route: 065
     Dates: start: 202212

REACTIONS (9)
  - Wernicke^s encephalopathy [Unknown]
  - Malnutrition [Unknown]
  - Weight decreased [Unknown]
  - Impaired gastric emptying [Unknown]
  - Paraesthesia [Unknown]
  - Muscular weakness [Unknown]
  - Folate deficiency [Unknown]
  - Fall [Unknown]
  - Amnesia [Unknown]
